FAERS Safety Report 8913450 (Version 1)
Quarter: 2012Q4

REPORT INFORMATION
  Report Type: Spontaneous
  Country: DK (occurrence: None)
  Receive Date: 20121113
  Receipt Date: 20121113
  Transmission Date: 20130627
  Serious: Yes (Hospitalization)
  Sender: FDA-Public Use
  Company Number: 2012MA013153

PATIENT
  Age: 82 Year
  Sex: Male

DRUGS (7)
  1. LEVETIRACETAM [Suspect]
     Indication: DRUG USE FOR UNKNOWN INDICATION
     Dates: start: 20121002, end: 20121002
  2. LEVETIRACETAM [Concomitant]
  3. LANSOX [Concomitant]
  4. ARIXTRA [Concomitant]
  5. SANDIMMUN [Concomitant]
  6. SOLDESAM [Concomitant]
  7. ISO-PURAMIN [Concomitant]

REACTIONS (1)
  - Epilepsy [None]
